FAERS Safety Report 10413607 (Version 1)
Quarter: 2014Q2

REPORT INFORMATION
  Report Type: Spontaneous
  Country: US (occurrence: None)
  Receive Date: 20140604
  Receipt Date: 20140604
  Transmission Date: 20141212
  Serious: Yes (Hospitalization)
  Sender: FDA-Public Use
  Company Number: 20120815CINRY3269

PATIENT
  Age: 47 Year
  Sex: Female

DRUGS (6)
  1. CINRYZE (C1 ESTERASE INHIBITOR (HUMAN)) (500 UNIT, INJECTION FOR INFUSION) (C1 ESTERASE INHIBITOR (HUMAN)) [Suspect]
     Indication: HEREDITARY ANGIOEDEMA
     Dosage: (1000 UNIT,1 IN 2 D)
     Route: 042
     Dates: start: 20110719
  2. CINRYZE (C1 ESTERASE INHIBITOR (HUMAN)) (500 UNIT, INJECTION FOR INFUSION) (C1 ESTERASE INHIBITOR (HUMAN)) [Suspect]
     Indication: PROPHYLAXIS
     Dosage: (1000 UNIT,1 IN 2 D)
     Route: 042
     Dates: start: 20110719
  3. ATENOLOL [Concomitant]
  4. METFORMIN [Concomitant]
  5. PROZAC (FLUOXETINE HYDROCHLORIDE) [Concomitant]
  6. MIRAPEX (PRAMIPEXOLE DIHYDROCHLORIDE) [Concomitant]

REACTIONS (6)
  - Hereditary angioedema [None]
  - Malaise [None]
  - Pyrexia [None]
  - Feeling cold [None]
  - Inappropriate schedule of drug administration [None]
  - Condition aggravated [None]
